FAERS Safety Report 12346456 (Version 3)
Quarter: 2016Q2

REPORT INFORMATION
  Report Type: Spontaneous
  Country: US (occurrence: US)
  Receive Date: 20160509
  Receipt Date: 20160518
  Transmission Date: 20160815
  Serious: No
  Sender: FDA-Public Use
  Company Number: US-BAYER-2016-088382

PATIENT
  Age: 64 Year
  Sex: Female

DRUGS (1)
  1. STIVARGA [Suspect]
     Active Substance: REGORAFENIB
     Indication: COLORECTAL CANCER METASTATIC
     Dosage: 120 MG, QD
     Route: 048

REACTIONS (3)
  - Palmar-plantar erythrodysaesthesia syndrome [None]
  - Blister [None]
  - Erythema [None]

NARRATIVE: CASE EVENT DATE: 20160509
